FAERS Safety Report 8347862-3 (Version None)
Quarter: 2012Q2

REPORT INFORMATION
  Report Type: 
  Country: None (occurrence: None)
  Receive Date: 20120509
  Receipt Date: 20120502
  Transmission Date: 20120825
  Serious: Yes (Other)
  Sender: FDA-Public Use
  Company Number: BR-ABBOTT-12P-020-0932095-00

PATIENT
  Sex: Female
  Weight: 80 kg

DRUGS (3)
  1. METHOTREXATE [Concomitant]
     Indication: MUSCULOSKELETAL PAIN
     Dosage: 1 APPLICATION EVERY WEDNESDAY
     Route: 058
  2. HUMIRA [Suspect]
     Indication: RHEUMATOID ARTHRITIS
     Route: 058
     Dates: start: 20100721
  3. FOLIC ACID [Concomitant]
     Indication: ANAEMIA PROPHYLAXIS
     Dosage: AFTER METHOTREXATE USE
     Route: 048

REACTIONS (3)
  - X-RAY ABNORMAL [None]
  - UNEVALUABLE EVENT [None]
  - BONE EROSION [None]
